FAERS Safety Report 18311688 (Version 1)
Quarter: 2020Q3

REPORT INFORMATION
  Report Type: Spontaneous
  Country: US (occurrence: US)
  Receive Date: 20200925
  Receipt Date: 20200925
  Transmission Date: 20201103
  Serious: Yes (Hospitalization, Other)
  Sender: FDA-Public Use
  Company Number: US-AUROBINDO-AUR-APL-2020-045426

PATIENT
  Age: 82 Year
  Sex: Male

DRUGS (7)
  1. DEXTROSE. [Concomitant]
     Active Substance: DEXTROSE
     Indication: MYELODYSPLASTIC SYNDROME
     Dosage: 250 MILLILITER, CYCLICAL
     Route: 041
     Dates: start: 201802
  2. INSULIN LIKE GROWTH FACTOR I (HUMAN) [Concomitant]
     Active Substance: MECASERMIN
     Indication: MYELODYSPLASTIC SYNDROME
     Dosage: UNK,6 CYCLE
     Route: 041
     Dates: start: 201802
  3. METHOTREXATE. [Concomitant]
     Active Substance: METHOTREXATE
     Indication: MYELODYSPLASTIC SYNDROME
     Dosage: UNK,6 CYCLE
     Route: 041
     Dates: start: 201802
  4. METHOTREXATE. [Concomitant]
     Active Substance: METHOTREXATE
     Indication: DISEASE PROGRESSION
  5. LOSARTAN. [Suspect]
     Active Substance: LOSARTAN
     Indication: HYPERTENSION
     Dosage: UNK
     Route: 065
  6. INSULIN LIKE GROWTH FACTOR I (HUMAN) [Concomitant]
     Active Substance: MECASERMIN
     Indication: DISEASE PROGRESSION
  7. DEXTROSE. [Concomitant]
     Active Substance: DEXTROSE
     Indication: DISEASE PROGRESSION

REACTIONS (2)
  - Orthostatic hypotension [Unknown]
  - Syncope [Unknown]

NARRATIVE: CASE EVENT DATE: 2018
